FAERS Safety Report 24561485 (Version 1)
Quarter: 2024Q4

REPORT INFORMATION
  Report Type: Spontaneous
  Country: BR (occurrence: BR)
  Receive Date: 20241029
  Receipt Date: 20241029
  Transmission Date: 20250115
  Serious: Yes (Other)
  Sender: BRISTOL-MYERS SQUIBB COMPANY
  Company Number: BR-BRISTOL-MYERS SQUIBB COMPANY-2024-167593

PATIENT
  Age: 42 Year
  Sex: Female
  Weight: 102 kg

DRUGS (1)
  1. REVLIMID [Suspect]
     Active Substance: LENALIDOMIDE
     Indication: Product used for unknown indication
     Dosage: DOSE AND FREQUENCY: UNAVAILABLE
     Dates: start: 202408, end: 202408

REACTIONS (2)
  - Premature menopause [Unknown]
  - Spinal disorder [Unknown]
